FAERS Safety Report 7711008-2 (Version None)
Quarter: 2011Q3

REPORT INFORMATION
  Report Type: 
  Country: None (occurrence: None)
  Receive Date: 20110825
  Receipt Date: 20110817
  Transmission Date: 20111222
  Serious: Yes (Hospitalization)
  Sender: FDA-Public Use
  Company Number: AT-GENENTECH-323356

PATIENT
  Sex: Male

DRUGS (13)
  1. BENDAMUSTINE [Suspect]
     Indication: NON-HODGKIN'S LYMPHOMA
     Dosage: 90 MG/M2, UNK
     Route: 042
     Dates: start: 20100716, end: 20101216
  2. ALLOPURINOL [Concomitant]
     Dosage: UNK
  3. MOVIPREP [Concomitant]
     Dosage: UNK
     Dates: start: 20100909
  4. CARVEDILOL [Concomitant]
     Dosage: UNK
     Dates: start: 20101101
  5. ULSAL [Concomitant]
     Dosage: UNK
     Dates: start: 20101101
  6. LOVENOX [Concomitant]
     Dosage: UNK
     Dates: start: 20100701
  7. RITUXIMAB [Suspect]
     Dosage: 710 MG, Q8W
     Route: 042
     Dates: start: 20110202, end: 20110817
  8. RAMIPRIL [Concomitant]
     Dosage: UNK
     Dates: start: 20101101
  9. RITUXIMAB [Suspect]
     Indication: NON-HODGKIN'S LYMPHOMA
     Dosage: 375 MG/M2, UNK
     Route: 042
     Dates: start: 20100715, end: 20101202
  10. ASPIRIN [Concomitant]
     Dosage: UNK
     Dates: start: 20101101
  11. RAMIPRIL [Concomitant]
     Dosage: UNK
  12. LASIX [Concomitant]
     Dosage: UNK
     Dates: start: 20101101
  13. RITUXIMAB [Suspect]
     Dosage: UNK
     Route: 042
     Dates: start: 20101216, end: 20110112

REACTIONS (1)
  - CEREBRAL ISCHAEMIA [None]
